FAERS Safety Report 8772544 (Version 7)
Quarter: 2013Q3

REPORT INFORMATION
  Report Type: Report from Study
  Country: CA (occurrence: CA)
  Receive Date: 20120905
  Receipt Date: 20130704
  Transmission Date: 20140515
  Serious: Yes (Hospitalization, Other)
  Sender: FDA-Public Use
  Company Number: CA-ROCHE-1103897

PATIENT
  Sex: Female

DRUGS (12)
  1. ZELBORAF [Suspect]
     Indication: METASTATIC MALIGNANT MELANOMA
     Route: 048
     Dates: start: 201207
  2. ZELBORAF [Suspect]
     Route: 048
     Dates: start: 20120824
  3. QUETIAPINE [Concomitant]
  4. LORAZEPAM [Concomitant]
  5. FENTANYL PATCH [Concomitant]
     Route: 062
  6. HYDROMORPHONE [Concomitant]
  7. ONDANSETRON [Concomitant]
  8. CAPHOSOL [Concomitant]
  9. SENOKOT [Concomitant]
  10. NYSTATIN [Concomitant]
  11. MIRTAZAPINE [Concomitant]
     Indication: DEPRESSION
  12. ALPRAZOLAM [Concomitant]

REACTIONS (10)
  - Feeding disorder [Not Recovered/Not Resolved]
  - Oedema mouth [Not Recovered/Not Resolved]
  - Swelling face [Not Recovered/Not Resolved]
  - Maxillofacial sinus neoplasm [Unknown]
  - Rash [Not Recovered/Not Resolved]
  - Arthralgia [Not Recovered/Not Resolved]
  - Fatigue [Unknown]
  - Oral pain [Unknown]
  - Stomatitis [Recovered/Resolved]
  - Nausea [Recovered/Resolved]
